FAERS Safety Report 8537313 (Version 5)
Quarter: 2013Q2

REPORT INFORMATION
  Report Type: Report from Study
  Country: DE (occurrence: DE)
  Receive Date: 20120430
  Receipt Date: 20130429
  Transmission Date: 20140414
  Serious: Yes (Hospitalization)
  Sender: FDA-Public Use
  Company Number: PHHO2012DE006312

PATIENT
  Age: 63 Year
  Sex: Male
  Weight: 76 kg

DRUGS (5)
  1. CERTICAN [Suspect]
     Indication: RENAL TRANSPLANT
     Dosage: 3-0-3.5 MG
     Route: 048
     Dates: start: 20120531
  2. PROGRAF [Suspect]
     Indication: RENAL TRANSPLANT
     Dosage: 4 MG, BID
     Route: 048
     Dates: start: 20120310
  3. MYFORTIC [Suspect]
     Indication: RENAL TRANSPLANT
     Dosage: 720 MG, BID
     Route: 048
     Dates: start: 20120310
  4. PREDNISONE [Suspect]
     Indication: RENAL TRANSPLANT
     Dosage: 10 MG, QD
     Route: 048
     Dates: start: 20120311
  5. SIMULECT [Concomitant]
     Indication: RENAL TRANSPLANT
     Dosage: 20 MG, UNK
     Route: 042
     Dates: start: 20120310

REACTIONS (4)
  - Pyelonephritis [Recovered/Resolved]
  - Pyrexia [Recovered/Resolved]
  - Diabetes mellitus [Not Recovered/Not Resolved]
  - Benign prostatic hyperplasia [Recovered/Resolved]
